FAERS Safety Report 25396139 (Version 2)
Quarter: 2025Q2

REPORT INFORMATION
  Report Type: Spontaneous
  Country: US (occurrence: US)
  Receive Date: 20250604
  Receipt Date: 20250620
  Transmission Date: 20250717
  Serious: Yes (Other)
  Sender: BAYER HEALTHCARE LLC
  Company Number: US-BAYER-2025A069734

PATIENT
  Age: 86 Year
  Sex: Male

DRUGS (4)
  1. AFRIN NO DRIP EXTRA MOISTURIZING [Suspect]
     Active Substance: OXYMETAZOLINE HYDROCHLORIDE
     Indication: Upper-airway cough syndrome
     Dosage: 2 PUFF(S), OM,
     Route: 045
     Dates: start: 20250514, end: 20250515
  2. AFRIN NO DRIP EXTRA MOISTURIZING [Suspect]
     Active Substance: OXYMETAZOLINE HYDROCHLORIDE
     Indication: Nasal congestion
  3. ASPIRIN [Concomitant]
     Active Substance: ASPIRIN
  4. ROSUVASTATIN [Concomitant]
     Active Substance: ROSUVASTATIN

REACTIONS (11)
  - Choking [Recovering/Resolving]
  - Nasal congestion [Recovering/Resolving]
  - Rhinorrhoea [Recovering/Resolving]
  - Headache [Recovering/Resolving]
  - Visual impairment [Recovering/Resolving]
  - Cough [Recovering/Resolving]
  - Productive cough [Recovering/Resolving]
  - Rales [Recovering/Resolving]
  - Blood pressure decreased [Recovering/Resolving]
  - Disorientation [Recovering/Resolving]
  - Sneezing [Recovering/Resolving]
